FAERS Safety Report 6996968-X (Version None)
Quarter: 2010Q3

REPORT INFORMATION
  Report Type: 
  Country: None (occurrence: None)
  Receive Date: 20100918
  Receipt Date: 20090922
  Transmission Date: 20110219
  Serious: No
  Sender: FDA-Public Use
  Company Number: US-WYE-H10627809

PATIENT
  Sex: Female
  Weight: 71.73 kg

DRUGS (4)
  1. PRISTIQ [Suspect]
     Indication: MAJOR DEPRESSION
     Route: 048
     Dates: start: 20080814, end: 20090816
  2. LISINOPRIL [Concomitant]
  3. ALPRAZOLAM [Concomitant]
  4. LOVASTATIN [Concomitant]

REACTIONS (4)
  - FATIGUE [None]
  - FEELING ABNORMAL [None]
  - HEAD DISCOMFORT [None]
  - PALPITATIONS [None]
